FAERS Safety Report 26203972 (Version 1)
Quarter: 2025Q4

REPORT INFORMATION
  Report Type: Spontaneous
  Country: US (occurrence: US)
  Receive Date: 20251226
  Receipt Date: 20251226
  Transmission Date: 20260119
  Serious: Yes (Hospitalization, Other)
  Sender: AMGEN
  Company Number: US-AMGEN-USASP2025253674

PATIENT
  Age: 48 Year
  Sex: Female

DRUGS (4)
  1. PREDNISONE [Suspect]
     Active Substance: PREDNISONE
     Indication: Renal transplant
     Dosage: UNK
     Route: 065
  2. MYCOPHENOLATE MOFETIL [Concomitant]
     Active Substance: MYCOPHENOLATE MOFETIL
  3. CARVEDILOL [Concomitant]
     Active Substance: CARVEDILOL
  4. DILTIAZEM [Concomitant]
     Active Substance: DILTIAZEM

REACTIONS (14)
  - Renal failure [Recovered/Resolved]
  - BRASH syndrome [Unknown]
  - Clostridium difficile infection [Unknown]
  - Pancreatitis [Unknown]
  - Klebsiella bacteraemia [Unknown]
  - Encephalopathy [Unknown]
  - Hyperkalaemia [Unknown]
  - Bradycardia [Unknown]
  - Mental status changes [Unknown]
  - Acidosis [Unknown]
  - Hypotension [Unknown]
  - Pyrexia [Unknown]
  - Diarrhoea [Unknown]
  - Drug ineffective [Unknown]
